FAERS Safety Report 10203287 (Version 5)
Quarter: 2015Q1

REPORT INFORMATION
  Report Type: Report from Study
  Country: US (occurrence: US)
  Receive Date: 20140529
  Receipt Date: 20150218
  Transmission Date: 20150720
  Serious: Yes (Hospitalization, Other)
  Sender: FDA-Public Use
  Company Number: US-ALEXION-A201402025

PATIENT

DRUGS (1)
  1. SOLIRIS [Suspect]
     Active Substance: ECULIZUMAB
     Indication: PRODUCT USED FOR UNKNOWN INDICATION
     Dosage: 1200 MG, QW
     Route: 042
     Dates: start: 20140404

REACTIONS (8)
  - Gastrointestinal inflammation [Unknown]
  - Platelet count decreased [Not Recovered/Not Resolved]
  - Cerebral infarction [Not Recovered/Not Resolved]
  - Fluid retention [Unknown]
  - Oedema [Unknown]
  - Abdominal distension [Unknown]
  - Malaise [Not Recovered/Not Resolved]
  - White blood cell disorder [Unknown]

NARRATIVE: CASE EVENT DATE: 20140425
